FAERS Safety Report 6665826-2 (Version None)
Quarter: 2010Q1

REPORT INFORMATION
  Report Type: 
  Country: None (occurrence: None)
  Receive Date: 20100329
  Receipt Date: 20091210
  Transmission Date: 20100710
  Serious: No
  Sender: FDA-Public Use
  Company Number: 2009-00795

PATIENT
  Age: 50 Year
  Sex: Male
  Weight: 90.7194 kg

DRUGS (1)
  1. COLD REMEDY ORAL MIST [Suspect]
     Dosage: QID FOR 6 DAYS
     Dates: start: 20091204, end: 20091210

REACTIONS (2)
  - AGEUSIA [None]
  - HEADACHE [None]
